FAERS Safety Report 7390537-8 (Version None)
Quarter: 2011Q2

REPORT INFORMATION
  Report Type: 
  Country: None (occurrence: None)
  Receive Date: 20110403
  Receipt Date: 20090922
  Transmission Date: 20111010
  Serious: Yes (Hospitalization, Other)
  Sender: FDA-Public Use
  Company Number: PHHY2009DE40585

PATIENT
  Sex: Female

DRUGS (5)
  1. EXTAVIA [Suspect]
     Route: 058
  2. GABAPENTIN [Concomitant]
  3. EXTAVIA [Suspect]
     Route: 058
  4. EXTAVIA [Suspect]
     Indication: MULTIPLE SCLEROSIS
     Dosage: 250 UG
     Route: 058
     Dates: start: 20090101
  5. HEPARIN SODIUM [Concomitant]

REACTIONS (13)
  - PARAESTHESIA [None]
  - INJECTION SITE PRURITUS [None]
  - HYPOAESTHESIA [None]
  - PSORIASIS [None]
  - PAIN [None]
  - PYREXIA [None]
  - INJECTION SITE ERYTHEMA [None]
  - SKIN EXFOLIATION [None]
  - NASOPHARYNGITIS [None]
  - MULTIPLE SCLEROSIS RELAPSE [None]
  - GAIT DISTURBANCE [None]
  - BURNING SENSATION [None]
  - ARTHROPATHY [None]
